FAERS Safety Report 6016210-6 (Version None)
Quarter: 2008Q4

REPORT INFORMATION
  Report Type: 
  Country: None (occurrence: None)
  Receive Date: 20081222
  Receipt Date: 20071214
  Transmission Date: 20090506
  Serious: No
  Sender: FDA-Public Use
  Company Number: US-BRISTOL-MYERS SQUIBB COMPANY-14015242

PATIENT

DRUGS (1)
  1. KENALOG [Suspect]

REACTIONS (1)
  - SKIN HYPOPIGMENTATION [None]
